FAERS Safety Report 16442956 (Version 1)
Quarter: 2019Q2

REPORT INFORMATION
  Report Type: Spontaneous
  Country: TN (occurrence: TN)
  Receive Date: 20190617
  Receipt Date: 20190617
  Transmission Date: 20190711
  Serious: Yes (Other)
  Sender: FDA-Public Use
  Company Number: PHHY2019TN137867

PATIENT
  Sex: Female

DRUGS (2)
  1. BETAMETHASONE. [Suspect]
     Active Substance: BETAMETHASONE
     Indication: PUSTULAR PSORIASIS
     Dosage: UNK
     Route: 061
  2. CICLOSPORIN [Suspect]
     Active Substance: CYCLOSPORINE
     Indication: PUSTULAR PSORIASIS
     Dosage: 100 MG, QD
     Route: 065

REACTIONS (2)
  - Maternal exposure during pregnancy [Unknown]
  - Premature delivery [Unknown]
